FAERS Safety Report 9720920 (Version 1)
Quarter: 2013Q4

REPORT INFORMATION
  Report Type: Spontaneous
  Country: BR (occurrence: BR)
  Receive Date: 20131129
  Receipt Date: 20131129
  Transmission Date: 20140711
  Serious: Yes (Other)
  Sender: FDA-Public Use
  Company Number: PHHY2013BR135952

PATIENT
  Sex: Female

DRUGS (1)
  1. LECTRUM [Suspect]
     Indication: UTERINE LEIOMYOMA

REACTIONS (1)
  - Haemorrhage [Unknown]
